FAERS Safety Report 6786168-0 (Version None)
Quarter: 2010Q2

REPORT INFORMATION
  Report Type: 
  Country: None (occurrence: None)
  Receive Date: 20100622
  Receipt Date: 20100622
  Transmission Date: 20101027
  Serious: Yes (Life-Threatening)
  Sender: FDA-Public Use
  Company Number: None

PATIENT
  Age: 44 Year
  Sex: Female
  Weight: 90.7194 kg

DRUGS (2)
  1. SAVELLA [Suspect]
  2. CYMBALTA [Concomitant]

REACTIONS (4)
  - DRUG HYPERSENSITIVITY [None]
  - GASTRIC DISORDER [None]
  - NO THERAPEUTIC RESPONSE [None]
  - PAIN [None]
